FAERS Safety Report 24526711 (Version 1)
Quarter: 2024Q4

REPORT INFORMATION
  Report Type: Spontaneous
  Country: US (occurrence: US)
  Receive Date: 20241021
  Receipt Date: 20241021
  Transmission Date: 20250115
  Serious: No
  Sender: ALEXION PHARMACEUTICALS
  Company Number: US-AstraZeneca-CH-00712131AP

PATIENT

DRUGS (2)
  1. SYMBICORT [Suspect]
     Active Substance: BUDESONIDE\FORMOTEROL FUMARATE DIHYDRATE
     Dosage: UNK
     Route: 065
  2. BUDESONIDE\FORMOTEROL [Suspect]
     Active Substance: BUDESONIDE\FORMOTEROL
     Route: 065

REACTIONS (15)
  - Confusional state [Unknown]
  - Feeling abnormal [Unknown]
  - Device use issue [Unknown]
  - Chronic obstructive pulmonary disease [Unknown]
  - Medication error [Unknown]
  - Device defective [Unknown]
  - Product dose omission issue [Unknown]
  - Device issue [Unknown]
  - Complication associated with device [Unknown]
  - Dyskinesia [Unknown]
  - Hand deformity [Unknown]
  - Chronic obstructive pulmonary disease [Unknown]
  - Product quality issue [Unknown]
  - Arthralgia [Unknown]
  - Gait disturbance [Unknown]
